FAERS Safety Report 16320843 (Version 1)
Quarter: 2019Q2

REPORT INFORMATION
  Report Type: Spontaneous
  Country: US (occurrence: US)
  Receive Date: 20190516
  Receipt Date: 20190516
  Transmission Date: 20190711
  Serious: No
  Sender: FDA-Public Use
  Company Number: US-GLAXOSMITHKLINE-US2019083783

PATIENT
  Age: 59 Year
  Sex: Female

DRUGS (2)
  1. ABREVA [Suspect]
     Active Substance: DOCOSANOL
     Indication: ORAL HERPES
     Dosage: UNK (FIVE TIMES)
     Route: 062
     Dates: start: 20190507, end: 20190508
  2. ABREVA [Suspect]
     Active Substance: DOCOSANOL
     Dosage: UNK (FIVE TIMES)
     Route: 062
     Dates: start: 20190508, end: 20190509

REACTIONS (2)
  - Product complaint [Unknown]
  - Incorrect product administration duration [Unknown]

NARRATIVE: CASE EVENT DATE: 20190508
